FAERS Safety Report 10040486 (Version 1)
Quarter: 2014Q1

REPORT INFORMATION
  Report Type: Report from Study
  Country: DE (occurrence: DE)
  Receive Date: 20140327
  Receipt Date: 20140327
  Transmission Date: 20141002
  Serious: Yes (Hospitalization)
  Sender: FDA-Public Use
  Company Number: DE-ROCHE-1368194

PATIENT
  Age: 74 Year
  Sex: Female
  Weight: 68 kg

DRUGS (7)
  1. TRASTUZUMAB [Suspect]
     Indication: BREAST CANCER
     Dosage: LOADING DOSE
     Route: 042
     Dates: start: 20130429
  2. TRASTUZUMAB [Suspect]
     Dosage: MAINTAINANCE DOSE: DATE OF LAST DOSE PRIOR TO SAE ON 28/FEB/2014
     Route: 042
     Dates: start: 20130521
  3. EPIRUBICIN [Suspect]
     Indication: BREAST CANCER
     Dosage: DATE OF LAST DOSE PRIOR TO SAE : 08/APR/2013
     Route: 042
     Dates: start: 20130204
  4. CYCLOPHOSPHAMIDE [Suspect]
     Indication: BREAST CANCER
     Dosage: DATE OF LAST DOSE PRIOR TO SAE : 08/APR/2013
     Route: 042
     Dates: start: 20130204
  5. PACLITAXEL [Suspect]
     Indication: BREAST CANCER
     Dosage: DATE OF LAST DOSE PRIOR TO SAE : 25/JUL/2013
     Route: 042
     Dates: start: 20130429
  6. PERTUZUMAB [Suspect]
     Indication: BREAST CANCER
     Dosage: LOADING DOSE
     Route: 042
     Dates: start: 20130429
  7. PERTUZUMAB [Suspect]
     Dosage: MAINTAINANCE DOSE: DATE OF LAST DOSE PRIOR TO SAE ON 28/FEB/2014
     Route: 042
     Dates: start: 20130521

REACTIONS (1)
  - Pleural infection [Recovering/Resolving]
